FAERS Safety Report 12463661 (Version 1)
Quarter: 2016Q2

REPORT INFORMATION
  Report Type: Spontaneous
  Country: US (occurrence: US)
  Receive Date: 20160614
  Receipt Date: 20160614
  Transmission Date: 20160815
  Serious: No
  Sender: FDA-Public Use
  Company Number: US-PFIZER INC-2016292456

PATIENT
  Sex: Female

DRUGS (16)
  1. PREMARIN [Suspect]
     Active Substance: ESTROGENS, CONJUGATED
  2. TOBREX [Suspect]
     Active Substance: TOBRAMYCIN
  3. NEURONTIN [Suspect]
     Active Substance: GABAPENTIN
  4. TOPAMAX [Suspect]
     Active Substance: TOPIRAMATE
  5. PRAVACHOL [Suspect]
     Active Substance: PRAVASTATIN SODIUM
  6. VANCOMYCIN HCL [Suspect]
     Active Substance: VANCOMYCIN HYDROCHLORIDE
  7. ASA [Suspect]
     Active Substance: ASPIRIN
  8. ROZEREM [Suspect]
     Active Substance: RAMELTEON
  9. PREVACID [Suspect]
     Active Substance: LANSOPRAZOLE
  10. CIPRO [Suspect]
     Active Substance: CIPROFLOXACIN HYDROCHLORIDE
  11. SINGULAIR [Suspect]
     Active Substance: MONTELUKAST SODIUM
  12. COREG [Suspect]
     Active Substance: CARVEDILOL
  13. HUMIRA [Suspect]
     Active Substance: ADALIMUMAB
  14. LYRICA [Suspect]
     Active Substance: PREGABALIN
  15. IODINE. [Suspect]
     Active Substance: IODINE
  16. ZOCOR [Suspect]
     Active Substance: SIMVASTATIN

REACTIONS (1)
  - Drug hypersensitivity [Unknown]
